FAERS Safety Report 8090647-6 (Version None)
Quarter: 2012Q1

REPORT INFORMATION
  Report Type: 
  Country: None (occurrence: None)
  Receive Date: 20120129
  Receipt Date: 20111202
  Transmission Date: 20120608
  Serious: No
  Sender: FDA-Public Use
  Company Number: US-ABBOTT-11P-163-0881617-00

PATIENT
  Sex: Female

DRUGS (1)
  1. HUMIRA [Suspect]
     Indication: RHEUMATOID ARTHRITIS
     Dates: start: 20110627, end: 20111202

REACTIONS (5)
  - INJECTION SITE REACTION [None]
  - ARTHRALGIA [None]
  - INJECTION SITE NODULE [None]
  - JOINT SWELLING [None]
  - FEELING HOT [None]
